FAERS Safety Report 12487373 (Version 1)
Quarter: 2016Q2

REPORT INFORMATION
  Report Type: Spontaneous
  Country: US (occurrence: US)
  Receive Date: 20160622
  Receipt Date: 20160622
  Transmission Date: 20160815
  Serious: Yes (Hospitalization, Other)
  Sender: FDA-Public Use
  Company Number: US-ZYDUS-011369

PATIENT
  Age: 82 Year
  Sex: Female

DRUGS (2)
  1. WARFARIN [Suspect]
     Active Substance: WARFARIN
     Indication: ATRIAL FLUTTER
     Route: 065
  2. ENOXAPARIN/ENOXAPARIN SODIUM [Suspect]
     Active Substance: ENOXAPARIN\ENOXAPARIN SODIUM
     Indication: ATRIAL FLUTTER
     Route: 058

REACTIONS (9)
  - Dermatitis bullous [Recovering/Resolving]
  - Condition aggravated [Recovering/Resolving]
  - Anaemia [None]
  - Epistaxis [Recovering/Resolving]
  - Scab [Recovering/Resolving]
  - International normalised ratio increased [None]
  - Skin necrosis [Recovering/Resolving]
  - Papule [Recovering/Resolving]
  - Parakeratosis [Recovering/Resolving]
